FAERS Safety Report 15795352 (Version 1)
Quarter: 2019Q1

REPORT INFORMATION
  Report Type: Report from Study
  Country: US (occurrence: US)
  Receive Date: 20190107
  Receipt Date: 20190107
  Transmission Date: 20190417
  Serious: Yes (Other)
  Sender: FDA-Public Use
  Company Number: US-EISAI MEDICAL RESEARCH-EC-2018-046006

PATIENT
  Sex: Male
  Weight: 66.6 kg

DRUGS (21)
  1. OMEPRAZOLE. [Concomitant]
     Active Substance: OMEPRAZOLE
  2. MEN^S ONE DAILY [Concomitant]
  3. LISINOPRIL. [Concomitant]
     Active Substance: LISINOPRIL
  4. CARISOPRODOL. [Concomitant]
     Active Substance: CARISOPRODOL
  5. TEMAZEPAM. [Concomitant]
     Active Substance: TEMAZEPAM
  6. OXYCODONE-ACETAMINOPHEN/ PERCOCET [Concomitant]
  7. SODIUM POLYSTYRENE SUL [Concomitant]
  8. HYDROMORPHONE [Concomitant]
     Active Substance: HYDROMORPHONE
  9. LENVIMA [Suspect]
     Active Substance: LENVATINIB
     Route: 048
     Dates: start: 2018, end: 20181220
  10. ONDANSETRON HCL [Concomitant]
     Active Substance: ONDANSETRON HYDROCHLORIDE
  11. BELBUCA/BUPRENORPHINE [Concomitant]
  12. METHYLPREDNISOLONE. [Concomitant]
     Active Substance: METHYLPREDNISOLONE
  13. LENVIMA [Suspect]
     Active Substance: LENVATINIB
     Indication: HEPATIC CANCER
     Route: 048
     Dates: start: 20180927, end: 2018
  14. ADULT GLYCERIN [Concomitant]
  15. GLYCERIN. [Concomitant]
     Active Substance: GLYCERIN
  16. LOW DOSE ASPIRIN EC [Concomitant]
  17. STOOL SOFTENER (DOCUSATE) [Concomitant]
     Active Substance: DOCUSATE
  18. SERTRALINE HCL [Concomitant]
     Active Substance: SERTRALINE HYDROCHLORIDE
  19. DRONABINOL. [Concomitant]
     Active Substance: DRONABINOL
  20. OXYCODONE HYDROCHLORIDE. [Concomitant]
     Active Substance: OXYCODONE HYDROCHLORIDE
  21. MORPHINE SULFATE. [Concomitant]
     Active Substance: MORPHINE SULFATE

REACTIONS (8)
  - Asthenia [Unknown]
  - Abdominal discomfort [Unknown]
  - Chest pain [Unknown]
  - Dyspepsia [Unknown]
  - Constipation [Unknown]
  - Decreased appetite [Unknown]
  - Hypoaesthesia [Unknown]
  - Pulmonary embolism [Unknown]

NARRATIVE: CASE EVENT DATE: 2018
